FAERS Safety Report 4725815-1 (Version None)
Quarter: 2005Q3

REPORT INFORMATION
  Report Type: 
  Country: None (occurrence: None)
  Receive Date: 20050722
  Receipt Date: 20050722
  Transmission Date: 20060218
  Serious: Yes (Hospitalization, Other)
  Sender: FDA-Public Use
  Company Number: None

PATIENT
  Sex: Female
  Weight: 83.9 kg

DRUGS (1)
  1. TRANPLANT AUTOLOGOUS [Suspect]
     Dosage: SEE IMAGE
     Dates: start: 20050204

REACTIONS (4)
  - HAEMATOMA [None]
  - HAEMOGLOBIN DECREASED [None]
  - HAEMORRHAGE [None]
  - HEPATIC ENZYME INCREASED [None]
